FAERS Safety Report 9513806 (Version 2)
Quarter: 2013Q4

REPORT INFORMATION
  Report Type: Spontaneous
  Country: US (occurrence: US)
  Receive Date: 20130910
  Receipt Date: 20131004
  Transmission Date: 20140711
  Serious: Yes (Other)
  Sender: FDA-Public Use
  Company Number: US-FRI-1000048457

PATIENT
  Age: 41 Year
  Sex: Female

DRUGS (4)
  1. VIIBRYD [Suspect]
     Indication: DEPRESSION
     Dosage: 10MG
     Route: 048
     Dates: start: 20130826, end: 20130901
  2. VIIBRYD [Suspect]
     Dosage: 20MG
     Route: 048
     Dates: start: 20130902, end: 20130904
  3. AMBIEN [Concomitant]
     Indication: INSOMNIA
     Dosage: 5MG AS NEEDED
  4. XANAX [Concomitant]
     Indication: ANXIETY
     Dosage: 1MG TWICE DAILY AS NEEDED

REACTIONS (2)
  - Suicidal ideation [Recovering/Resolving]
  - Agitation [Recovering/Resolving]
